FAERS Safety Report 15988439 (Version 2)
Quarter: 2019Q2

REPORT INFORMATION
  Report Type: Report from Study
  Country: GR (occurrence: GR)
  Receive Date: 20190221
  Receipt Date: 20190407
  Transmission Date: 20190711
  Serious: Yes (Hospitalization)
  Sender: FDA-Public Use
  Company Number: GR-ACTELION-A-CH2019-186271

PATIENT
  Age: 70 Year
  Sex: Female
  Weight: 60 kg

DRUGS (11)
  1. UPTRAVI [Suspect]
     Active Substance: SELEXIPAG
     Dosage: 600 MCG, BID
     Route: 048
     Dates: start: 20190107
  2. UPTRAVI [Suspect]
     Active Substance: SELEXIPAG
     Dosage: 800 MCG, BID
     Route: 048
     Dates: end: 20190115
  3. UPTRAVI [Suspect]
     Active Substance: SELEXIPAG
     Dosage: 800 UNK
     Route: 048
  4. LOPRESSOR [Concomitant]
     Active Substance: METOPROLOL TARTRATE
  5. SALUREX [Concomitant]
  6. ALDACTONE [Concomitant]
     Active Substance: SPIRONOLACTONE
  7. UPTRAVI [Suspect]
     Active Substance: SELEXIPAG
     Indication: PULMONARY ARTERIAL HYPERTENSION
     Dosage: 800 + 200 + 800 MCG, QD
     Route: 048
     Dates: start: 20190116, end: 20190123
  8. UPTRAVI [Suspect]
     Active Substance: SELEXIPAG
     Dosage: 1000 MCG, BID
     Route: 048
     Dates: start: 20190124
  9. UPTRAVI [Suspect]
     Active Substance: SELEXIPAG
     Dosage: 200 MCG, BID
     Route: 048
     Dates: start: 20181210, end: 20190106
  10. LASIX [Concomitant]
     Active Substance: FUROSEMIDE
  11. SINTROM [Concomitant]
     Active Substance: ACENOCOUMAROL

REACTIONS (9)
  - Decreased appetite [Recovering/Resolving]
  - Fatigue [Recovering/Resolving]
  - Blood potassium decreased [Recovering/Resolving]
  - Asthenia [Recovering/Resolving]
  - Electrolyte imbalance [Recovering/Resolving]
  - Dyspnoea [Unknown]
  - Dizziness [Recovering/Resolving]
  - Lethargy [Recovering/Resolving]
  - Blood sodium decreased [Recovering/Resolving]

NARRATIVE: CASE EVENT DATE: 20190123
